FAERS Safety Report 17435943 (Version 3)
Quarter: 2020Q1

REPORT INFORMATION
  Report Type: Spontaneous
  Country: CH (occurrence: CH)
  Receive Date: 20200219
  Receipt Date: 20200221
  Transmission Date: 20200409
  Serious: Yes (Other)
  Sender: FDA-Public Use
  Company Number: CH-PFIZER INC-2020069897

PATIENT
  Age: 72 Year
  Sex: Male

DRUGS (29)
  1. NEXIUM MUPS [ESOMEPRAZOLE MAGNESIUM] [Concomitant]
     Active Substance: ESOMEPRAZOLE MAGNESIUM
     Dosage: UNK
     Dates: start: 20200121
  2. CORDARONE [Interacting]
     Active Substance: AMIODARONE HYDROCHLORIDE
     Dosage: 900 MG, DAILY
     Route: 042
     Dates: start: 20200121, end: 20200123
  3. CLOPIDOGREL [Concomitant]
     Active Substance: CLOPIDOGREL BISULFATE
     Dosage: UNK
     Dates: end: 20200117
  4. FERRUM [FERROUS FUMARATE] [Concomitant]
     Dosage: UNK
     Dates: start: 20200121
  5. MG 5-GRANORAL [Concomitant]
     Dosage: UNK
  6. TEMESTA [LORAZEPAM] [Concomitant]
     Active Substance: LORAZEPAM
     Dosage: UNK UNK, PRN
     Dates: start: 20200125
  7. LASIX [Concomitant]
     Active Substance: FUROSEMIDE
     Dates: start: 20200121, end: 20200123
  8. CORDARONE [Suspect]
     Active Substance: AMIODARONE HYDROCHLORIDE
     Indication: ATRIAL FIBRILLATION
     Dosage: 200 MG, Q3D (ONCE EVERY THREE DAYS)
     Route: 048
     Dates: start: 20200123, end: 20200123
  9. PURSANA [Concomitant]
     Active Substance: FIG FRUIT OIL\SORBITOL
     Dosage: UNK
  10. DAFALGAN [Suspect]
     Active Substance: ACETAMINOPHEN
     Dosage: 1000 MG, QID
     Route: 048
     Dates: start: 20200121, end: 20200125
  11. ENALAPRIL [ENALAPRIL MALEATE] [Suspect]
     Active Substance: ENALAPRIL MALEATE
     Dosage: 2.5 MG, QOD
     Route: 048
     Dates: start: 20200121, end: 20200127
  12. CLEXANE [Concomitant]
     Active Substance: ENOXAPARIN SODIUM
     Dosage: UNK
     Dates: start: 20200121, end: 20200122
  13. SEVREDOL [Concomitant]
     Active Substance: MORPHINE
     Dosage: UNK UNK, PRN
     Dates: start: 20200121
  14. ATORVASTATIN CALCIUM. [Interacting]
     Active Substance: ATORVASTATIN CALCIUM
     Dosage: 40 MG, QD
     Route: 048
     Dates: end: 20200125
  15. BELOC [METOPROLOL TARTRATE] [Concomitant]
     Active Substance: METOPROLOL TARTRATE
     Dosage: UNK
     Dates: start: 20200121
  16. HEPARINE [HEPARIN SODIUM] [Concomitant]
     Active Substance: HEPARIN SODIUM
     Dosage: UNK
     Dates: start: 20200122, end: 20200124
  17. XARELTO [Concomitant]
     Active Substance: RIVAROXABAN
     Dosage: UNK
     Dates: start: 20200124
  18. IPRAMOL [Concomitant]
     Active Substance: ALBUTEROL SULFATE\IPRATROPIUM BROMIDE
     Dosage: UNK UNK, PRN
     Dates: start: 20200125
  19. CORDARONE [Interacting]
     Active Substance: AMIODARONE HYDROCHLORIDE
     Indication: ATRIAL FIBRILLATION
     Dosage: 300 MG, TOTAL
     Route: 042
     Dates: start: 20200121, end: 20200121
  20. DAFALGAN [Suspect]
     Active Substance: ACETAMINOPHEN
     Dosage: 1000 MG, PRN MAX 3X/D ; AS NECESSARY
     Route: 048
     Dates: start: 20200121, end: 20200125
  21. ASPIRIN CARDIO [Concomitant]
     Active Substance: ASPIRIN
     Dosage: UNK
  22. ATACAND [Concomitant]
     Active Substance: CANDESARTAN CILEXETIL
     Dosage: UNK
     Dates: start: 20200128
  23. ACIDUM FOLICUM [Concomitant]
     Active Substance: FOLIC ACID
     Dosage: UNK
  24. MOVICOL [Concomitant]
     Active Substance: POLYETHYLENE GLYCOL 3350\POTASSIUM CHLORIDE\SODIUM BICARBONATE\SODIUM CHLORIDE
     Dosage: UNK UNK, PRN
     Dates: start: 20200121
  25. LAXOBERON [Concomitant]
     Active Substance: SODIUM PICOSULFATE
     Dosage: UNK UNK, PRN
     Dates: start: 20200121
  26. CORDARONE [Interacting]
     Active Substance: AMIODARONE HYDROCHLORIDE
     Dosage: 400 MG, ALTERNATE DAY
     Route: 048
     Dates: start: 20200123, end: 20200127
  27. DROPERIDOL. [Concomitant]
     Active Substance: DROPERIDOL
     Dosage: UNK UNK, PRN
     Dates: start: 20200121
  28. ATACAND [Concomitant]
     Active Substance: CANDESARTAN CILEXETIL
     Dosage: UNK
     Dates: end: 20200119
  29. SUPRADYN [ASCORBIC ACID;BIOTIN;CALCIUM;CALCIUM PANTOTHENATE;COPPER;FER [Concomitant]
     Dosage: UNK
     Dates: start: 20200121

REACTIONS (2)
  - Drug interaction [Unknown]
  - Cholestatic liver injury [Recovering/Resolving]

NARRATIVE: CASE EVENT DATE: 20200121
